FAERS Safety Report 21782014 (Version 3)
Quarter: 2023Q2

REPORT INFORMATION
  Report Type: Report from Study
  Country: US (occurrence: US)
  Receive Date: 20221227
  Receipt Date: 20230414
  Transmission Date: 20230721
  Serious: Yes (Other)
  Sender: FDA-Public Use
  Company Number: US-002147023-NVSC2022US296639

PATIENT
  Sex: Female

DRUGS (1)
  1. KESIMPTA [Suspect]
     Active Substance: OFATUMUMAB
     Indication: Relapsing multiple sclerosis
     Dosage: 20 MG (0.4 ML), QW
     Route: 058
     Dates: start: 20221210

REACTIONS (2)
  - Uveitis [Not Recovered/Not Resolved]
  - Injection site bruising [Not Recovered/Not Resolved]
